FAERS Safety Report 9717667 (Version 1)
Quarter: 2013Q4

REPORT INFORMATION
  Report Type: Spontaneous
  Country: US (occurrence: None)
  Receive Date: 20131125
  Receipt Date: 20131125
  Transmission Date: 20140711
  Serious: Yes (Hospitalization)
  Sender: FDA-Public Use
  Company Number: 2013CT000099

PATIENT
  Age: 20 Year
  Sex: Female

DRUGS (1)
  1. KORLYM [Suspect]
     Indication: PITUITARY-DEPENDENT CUSHING^S SYNDROME
     Route: 048
     Dates: start: 201310

REACTIONS (4)
  - Renal failure [None]
  - Cellulitis [None]
  - Groin infection [None]
  - Localised infection [None]
